FAERS Safety Report 12543395 (Version 1)
Quarter: 2016Q3

REPORT INFORMATION
  Report Type: Spontaneous
  Country: US (occurrence: US)
  Receive Date: 20160711
  Receipt Date: 20160711
  Transmission Date: 20161109
  Serious: Yes (Other)
  Sender: FDA-Public Use
  Company Number: US-TEVA-604073USA

PATIENT
  Sex: Male

DRUGS (1)
  1. VENLAFAXINE [Suspect]
     Active Substance: VENLAFAXINE HYDROCHLORIDE
     Dosage: 37.5 MILLIGRAM DAILY;
     Dates: start: 20151006

REACTIONS (6)
  - Product physical issue [Unknown]
  - Product quality issue [Unknown]
  - Drug prescribing error [Unknown]
  - Arrhythmia [Unknown]
  - Electrocardiogram QT prolonged [Unknown]
  - Hypertension [Unknown]

NARRATIVE: CASE EVENT DATE: 201510
